FAERS Safety Report 17278973 (Version 7)
Quarter: 2021Q2

REPORT INFORMATION
  Report Type: Spontaneous
  Country: US (occurrence: US)
  Receive Date: 20200116
  Receipt Date: 20210524
  Transmission Date: 20210716
  Serious: No
  Sender: FDA-Public Use
  Company Number: US-ASTRAZENECA-2019SF84615

PATIENT
  Age: 80 Year
  Sex: Male
  Weight: 81.6 kg

DRUGS (8)
  1. LISINOPRIL. [Concomitant]
     Active Substance: LISINOPRIL
     Indication: BLOOD PRESSURE ABNORMAL
  2. VENTOLIN [Concomitant]
     Active Substance: ALBUTEROL SULFATE
     Dosage: AS REQUIRED
  3. FLONASE [Concomitant]
     Active Substance: FLUTICASONE PROPIONATE
  4. PAXIL [Concomitant]
     Active Substance: PAROXETINE HYDROCHLORIDE
     Indication: DEPRESSION
     Dosage: GENERIC
     Dates: start: 1995
  5. SYMBICORT [Suspect]
     Active Substance: BUDESONIDE\FORMOTEROL FUMARATE DIHYDRATE
     Indication: RETINITIS
     Dosage: 160/4.5 MCG 2 PUFFS,TWO TIMES A DAY
     Route: 055
     Dates: start: 1998
  6. ADVAIR HFA [Concomitant]
     Active Substance: FLUTICASONE PROPIONATE\SALMETEROL XINAFOATE
     Dosage: AS REQUIRED
     Route: 065
  7. PAXIL [Concomitant]
     Active Substance: PAROXETINE HYDROCHLORIDE
     Indication: BLOOD PRESSURE INCREASED
     Dosage: GENERIC
     Dates: start: 1995
  8. PAXIL [Concomitant]
     Active Substance: PAROXETINE HYDROCHLORIDE
     Indication: NERVOUSNESS
     Dosage: GENERIC
     Dates: start: 1995

REACTIONS (24)
  - Bronchitis [Unknown]
  - Anxiety [Unknown]
  - Drug ineffective [Unknown]
  - Secretion discharge [Unknown]
  - Productive cough [Not Recovered/Not Resolved]
  - Depression [Unknown]
  - Wrong technique in product usage process [Unknown]
  - Device failure [Unknown]
  - Sinus disorder [Not Recovered/Not Resolved]
  - Sinusitis [Unknown]
  - Fatigue [Unknown]
  - Swelling [Unknown]
  - Increased appetite [Unknown]
  - Feeling abnormal [Unknown]
  - Sinus congestion [Not Recovered/Not Resolved]
  - Dyspnoea [Unknown]
  - Weight increased [Unknown]
  - Cataract [Unknown]
  - Condition aggravated [Not Recovered/Not Resolved]
  - Intentional product misuse [Unknown]
  - Drug delivery system issue [Unknown]
  - Sinus polyp [Unknown]
  - Illness [Unknown]
  - Blood pressure increased [Unknown]
